FAERS Safety Report 18584872 (Version 1)
Quarter: 2020Q4

REPORT INFORMATION
  Report Type: Spontaneous
  Country: GB (occurrence: GB)
  Receive Date: 20201207
  Receipt Date: 20201207
  Transmission Date: 20210114
  Serious: Yes (Hospitalization)
  Sender: FDA-Public Use
  Company Number: GB-ACCORD-209860

PATIENT
  Age: 58 Year
  Sex: Female
  Weight: 85.3 kg

DRUGS (11)
  1. ATORVASTATIN [Concomitant]
     Active Substance: ATORVASTATIN
     Dosage: EVERY NIGHT
  2. SERTRALINE [Concomitant]
     Active Substance: SERTRALINE HYDROCHLORIDE
     Dosage: EVERY NIGHT
  3. OMEPRAZOLE. [Concomitant]
     Active Substance: OMEPRAZOLE
     Dosage: ONCE DAILY
  4. RAMIPRIL. [Concomitant]
     Active Substance: RAMIPRIL
     Dosage: EVERY MORNING
  5. TRESIBA [Concomitant]
     Active Substance: INSULIN DEGLUDEC
  6. CINACALCET HYDROCHLORIDE. [Suspect]
     Active Substance: CINACALCET HYDROCHLORIDE
     Indication: HYPERPARATHYROIDISM PRIMARY
     Route: 048
     Dates: start: 20200820, end: 202010
  7. TRULICITY [Concomitant]
     Active Substance: DULAGLUTIDE
     Dosage: ON SUNDAY
  8. SERTRALINE [Concomitant]
     Active Substance: SERTRALINE HYDROCHLORIDE
     Dosage: EVERY NIGHT
  9. METFORMIN [Concomitant]
     Active Substance: METFORMIN HYDROCHLORIDE
     Dosage: EVERY MORNING
  10. CINACALCET. [Suspect]
     Active Substance: CINACALCET
     Indication: HYPERPARATHYROIDISM PRIMARY
     Route: 048
     Dates: start: 202010
  11. DESOGESTREL [Concomitant]
     Active Substance: DESOGESTREL
     Dosage: AFTERNOON OR EVENING

REACTIONS (3)
  - Nausea [Unknown]
  - Blood calcium increased [Unknown]
  - Vomiting [Not Recovered/Not Resolved]

NARRATIVE: CASE EVENT DATE: 20201110
